FAERS Safety Report 9415019 (Version 1)
Quarter: 2013Q3

REPORT INFORMATION
  Report Type: Spontaneous
  Country: US (occurrence: US)
  Receive Date: 20130723
  Receipt Date: 20130723
  Transmission Date: 20140515
  Serious: Yes (Disabling, Other)
  Sender: FDA-Public Use
  Company Number: US-CELGENEUS-163-21880-13072951

PATIENT
  Age: 66 Year
  Sex: Male

DRUGS (21)
  1. REVLIMID [Suspect]
     Indication: PLASMA CELL MYELOMA
     Route: 048
     Dates: start: 200809
  2. REVLIMID [Suspect]
     Dosage: 15 MILLIGRAM
     Route: 048
     Dates: start: 200811
  3. REVLIMID [Suspect]
     Dosage: 15 MILLIGRAM
     Route: 048
     Dates: start: 200905
  4. REVLIMID [Suspect]
     Dosage: 10 MILLIGRAM
     Route: 048
     Dates: start: 201004
  5. REVLIMID [Suspect]
     Dosage: 5 MILLIGRAM
     Route: 048
     Dates: start: 201010
  6. REVLIMID [Suspect]
     Dosage: 10 MILLIGRAM
     Route: 048
     Dates: start: 201205
  7. DEXAMETHASONE [Suspect]
     Indication: PRODUCT USED FOR UNKNOWN INDICATION
     Route: 065
     Dates: start: 200811
  8. DEXAMETHASONE [Suspect]
     Route: 065
     Dates: start: 201003
  9. DYAZIDE [Concomitant]
     Indication: HYPERTENSION
     Dosage: 1 TABLET
     Route: 048
     Dates: start: 20050401
  10. LISINOPRIL [Concomitant]
     Indication: HYPERTENSION
     Dosage: 10 MILLIGRAM
     Route: 048
  11. LOMOTIL [Concomitant]
     Indication: DIARRHOEA
     Route: 048
  12. MOTRIN [Concomitant]
     Indication: ARTHRITIS
     Dosage: 2400 MILLIGRAM
     Route: 048
     Dates: start: 20040501
  13. PROVENTIL HFA [Concomitant]
     Indication: EMPHYSEMA
     Dosage: 1 PUFF
     Route: 055
     Dates: start: 20080801
  14. ZOMETA [Concomitant]
     Indication: PRODUCT USED FOR UNKNOWN INDICATION
     Route: 065
  15. ZOMETA [Concomitant]
     Route: 065
     Dates: start: 200809
  16. COUMADIN [Concomitant]
     Indication: THROMBOSIS
     Route: 065
  17. NORVASC [Concomitant]
     Indication: PRODUCT USED FOR UNKNOWN INDICATION
     Route: 065
  18. PEPCID [Concomitant]
     Indication: PRODUCT USED FOR UNKNOWN INDICATION
     Route: 065
  19. VITAMINS [Concomitant]
     Indication: PRODUCT USED FOR UNKNOWN INDICATION
     Route: 065
  20. VICODIN [Concomitant]
     Indication: PRODUCT USED FOR UNKNOWN INDICATION
     Route: 065
  21. HERBAL MEDICATIONS [Concomitant]
     Indication: PRODUCT USED FOR UNKNOWN INDICATION
     Route: 065

REACTIONS (8)
  - Lung neoplasm malignant [Unknown]
  - Wrist fracture [Unknown]
  - Hip fracture [Unknown]
  - Dyspnoea [Unknown]
  - Syncope [Unknown]
  - Thrombosis [Unknown]
  - Mood swings [Unknown]
  - Fatigue [Unknown]
